FAERS Safety Report 15067091 (Version 3)
Quarter: 2018Q3

REPORT INFORMATION
  Report Type: Spontaneous
  Country: FR (occurrence: FR)
  Receive Date: 20180626
  Receipt Date: 20180906
  Transmission Date: 20181010
  Serious: Yes (Other)
  Sender: FDA-Public Use
  Company Number: PHHY2017FR026189

PATIENT
  Age: 14 Year
  Sex: Female
  Weight: 42.5 kg

DRUGS (27)
  1. VORICONAZOLE. [Interacting]
     Active Substance: VORICONAZOLE
     Dosage: 8.75 MG/KG, Q12H
     Route: 048
  2. CASPOFUNGIN [Concomitant]
     Active Substance: CASPOFUNGIN
     Dosage: 50 MG,UNK
     Route: 065
  3. METHOTREXATE. [Concomitant]
     Active Substance: METHOTREXATE
     Indication: PRODUCT USED FOR UNKNOWN INDICATION
     Dosage: 5.5 G, UNK
     Route: 041
  4. PARACETAMOL [Concomitant]
     Active Substance: ACETAMINOPHEN
     Indication: PRODUCT USED FOR UNKNOWN INDICATION
     Dosage: FROM THE DAY 154 TO DAY 164
     Route: 065
  5. VORICONAZOLE. [Interacting]
     Active Substance: VORICONAZOLE
     Dosage: 7.5 MG, Q12H
     Route: 048
  6. VORICONAZOLE. [Interacting]
     Active Substance: VORICONAZOLE
     Dosage: INCREASED UP TO 8.75 MG/KG/ 12 H
     Route: 048
  7. VORICONAZOLE. [Interacting]
     Active Substance: VORICONAZOLE
     Dosage: MEAN DOSE OF 7.5
     Route: 042
  8. CASPOFUNGIN [Concomitant]
     Active Substance: CASPOFUNGIN
     Indication: PRODUCT USED FOR UNKNOWN INDICATION
     Dosage: 50 MG, UNK
     Route: 065
  9. TRIMETHOPRIM. [Concomitant]
     Active Substance: TRIMETHOPRIM
     Indication: PRODUCT USED FOR UNKNOWN INDICATION
     Dosage: STARTED THE DAY 159
     Route: 065
  10. VORICONAZOLE. [Suspect]
     Active Substance: VORICONAZOLE
     Indication: BRONCHOPULMONARY ASPERGILLOSIS
     Dosage: 7.5 MG/KG, BID
     Route: 042
  11. VORICONAZOLE. [Interacting]
     Active Substance: VORICONAZOLE
     Dosage: 7.5 MG, TWO TIMES A DAY
     Route: 042
  12. GRANULOCYTE COLONY STIMULATING FACTOR [Concomitant]
     Active Substance: GRANULOCYTE COLONY-STIMULATING FACTOR NOS
     Indication: PRODUCT USED FOR UNKNOWN INDICATION
     Dosage: FROM THE DAY 154 TO DAY 164
     Route: 065
  13. IMIPENEM [Concomitant]
     Active Substance: IMIPENEM
     Indication: PRODUCT USED FOR UNKNOWN INDICATION
     Dosage: STARTED THE DAY 155
     Route: 065
  14. VORICONAZOLE. [Interacting]
     Active Substance: VORICONAZOLE
     Dosage: 300 MG, UNK
     Route: 042
  15. VORICONAZOLE. [Interacting]
     Active Substance: VORICONAZOLE
     Dosage: 7.5 MG/KG, BID
     Route: 042
  16. VORICONAZOLE. [Interacting]
     Active Substance: VORICONAZOLE
     Dosage: UNK
     Route: 042
  17. VINCRISTINE [Interacting]
     Active Substance: VINCRISTINE
     Indication: ACUTE LYMPHOCYTIC LEUKAEMIA
     Dosage: 2 MG, UNK
     Route: 065
  18. PHLOROGLUCINOL [Concomitant]
     Active Substance: PHLOROGLUCINOL
     Indication: PRODUCT USED FOR UNKNOWN INDICATION
     Dosage: UNK
     Route: 065
  19. GABAPENTIN. [Concomitant]
     Active Substance: GABAPENTIN
     Indication: PRODUCT USED FOR UNKNOWN INDICATION
     Dosage: FROM THE DAY 154 TO DAY 164, 400 MG, 8 HOURS
     Route: 065
  20. AMPHOTERICIN B. [Concomitant]
     Active Substance: AMPHOTERICIN B
     Indication: PRODUCT USED FOR UNKNOWN INDICATION
     Dosage: STARTED THE DAY 159
     Route: 065
  21. AMIKACIN. [Concomitant]
     Active Substance: AMIKACIN
     Indication: PRODUCT USED FOR UNKNOWN INDICATION
     Dosage: STARTED THE DAY 155
     Route: 065
  22. FUROSEMIDE. [Concomitant]
     Active Substance: FUROSEMIDE
     Indication: PRODUCT USED FOR UNKNOWN INDICATION
     Dosage: STARTED THE DAY 159
     Route: 065
  23. VANCOMYCIN [Concomitant]
     Active Substance: VANCOMYCIN
     Indication: PRODUCT USED FOR UNKNOWN INDICATION
     Dosage: STARTED THE DAY 155
     Route: 065
  24. SULFAMETHOXAZOLE [Concomitant]
     Active Substance: SULFAMETHOXAZOLE
     Indication: PRODUCT USED FOR UNKNOWN INDICATION
     Dosage: STARTED THE DAY 159
     Route: 065
  25. VORICONAZOLE. [Interacting]
     Active Substance: VORICONAZOLE
     Dosage: UNK, (DOSE INCREASE (UP TO 8.75 MG/KG/12 H)
     Route: 048
  26. VORICONAZOLE. [Interacting]
     Active Substance: VORICONAZOLE
     Dosage: 7.5 MG/KG, Q12H
     Route: 048
  27. METHOTREXATE. [Concomitant]
     Active Substance: METHOTREXATE
     Indication: PRODUCT USED FOR UNKNOWN INDICATION
     Dosage: 5.5 G,UNK
     Route: 041

REACTIONS (16)
  - Drug level below therapeutic [Recovered/Resolved]
  - Hallucinations, mixed [Recovered/Resolved]
  - Encephalopathy [Recovering/Resolving]
  - Condition aggravated [Recovering/Resolving]
  - Electric shock [Unknown]
  - Inflammation [Recovering/Resolving]
  - Hypoaesthesia [Unknown]
  - Drug interaction [Recovering/Resolving]
  - Drug level increased [Unknown]
  - Bronchopulmonary aspergillosis [Recovering/Resolving]
  - Musculoskeletal pain [Unknown]
  - Confusional state [Recovering/Resolving]
  - Disorientation [Recovering/Resolving]
  - Respiratory distress [Recovering/Resolving]
  - Neuralgia [Recovering/Resolving]
  - Labelled drug-drug interaction medication error [Recovering/Resolving]
